FAERS Safety Report 5490154-0 (Version None)
Quarter: 2007Q4

REPORT INFORMATION
  Report Type: 
  Country: None (occurrence: None)
  Receive Date: 20071018
  Receipt Date: 20071016
  Transmission Date: 20080405
  Serious: Yes (Hospitalization)
  Sender: FDA-Public Use
  Company Number: JP-BOEHRINGER INGELHEIM PHARMACEUTICALS, INC.-2007-BP-21986NB

PATIENT
  Sex: Male
  Weight: 57 kg

DRUGS (5)
  1. MICARDIS [Suspect]
     Indication: HYPERTENSION
     Route: 048
     Dates: start: 20060522, end: 20070219
  2. TAGAMET [Concomitant]
     Route: 048
     Dates: start: 20040913
  3. PURSENNID (SENNOSIDE) [Concomitant]
     Route: 048
     Dates: start: 20060809
  4. ATELEC [Concomitant]
     Indication: HYPERTENSION
     Route: 048
     Dates: start: 20050307
  5. NOVOLIN R [Concomitant]
     Route: 058
     Dates: start: 19950101

REACTIONS (2)
  - HYPERKALAEMIA [None]
  - RENAL FAILURE CHRONIC [None]
